FAERS Safety Report 19341793 (Version 2)
Quarter: 2021Q2

REPORT INFORMATION
  Report Type: Spontaneous
  Country: US (occurrence: US)
  Receive Date: 20210530
  Receipt Date: 20210614
  Transmission Date: 20210717
  Serious: Yes (Hospitalization, Disabling, Other)
  Sender: FDA-Public Use
  Company Number: US-PURDUE-USA-2020-0197971

PATIENT
  Sex: Male

DRUGS (18)
  1. OXYCODONE/ ACETAMINOPHEN TABLETS [Suspect]
     Active Substance: ACETAMINOPHEN\OXYCODONE HYDROCHLORIDE
     Indication: PAIN
     Dosage: 5?325 MG
     Route: 048
     Dates: start: 20100603
  2. VALIUM [Suspect]
     Active Substance: DIAZEPAM
     Indication: ANXIETY
     Dosage: 5 MG, UNK
     Route: 065
     Dates: start: 20150512
  3. MORPHINE SULFATE (SIMILAR TO NDA 19?516) [Suspect]
     Active Substance: MORPHINE SULFATE
     Indication: PAIN
     Dosage: 6 MG, UNK
     Route: 065
     Dates: start: 20150127
  4. TRAMADOL CR TABLETS (RHODES 21?745) [Suspect]
     Active Substance: TRAMADOL
     Indication: PRODUCT USED FOR UNKNOWN INDICATION
     Dosage: 50 MG, UNK
     Route: 048
     Dates: start: 20100928
  5. PERCOCET                           /00446701/ [Suspect]
     Active Substance: ACETAMINOPHEN\OXYCODONE HYDROCHLORIDE\OXYCODONE TEREPHTHALATE
     Dosage: 5?325 MG Q4H
     Route: 065
     Dates: start: 20150128
  6. OXYCODONE HYDROCHLORIDE (SIMILAR TO NDA 22?272) [Suspect]
     Active Substance: OXYCODONE HYDROCHLORIDE
     Indication: PAIN
     Dosage: 15 MG, UNK
     Route: 065
  7. PERCOCET                           /00446701/ [Suspect]
     Active Substance: ACETAMINOPHEN\OXYCODONE HYDROCHLORIDE\OXYCODONE TEREPHTHALATE
     Indication: PAIN
     Dosage: UNK, Q4? 6H
     Route: 065
  8. OXYMORPHONE [Suspect]
     Active Substance: OXYMORPHONE
     Indication: PRODUCT USED FOR UNKNOWN INDICATION
     Dosage: UNKNOWN
     Route: 065
  9. OXYCONTIN [Suspect]
     Active Substance: OXYCODONE HYDROCHLORIDE
     Dosage: 20 MG, UNK
     Route: 048
     Dates: start: 20100125
  10. DILAUDID [Suspect]
     Active Substance: HYDROMORPHONE HYDROCHLORIDE
     Indication: PAIN
     Dosage: 1 MG, UNK
     Route: 048
     Dates: start: 20150128
  11. BUPRENORPHINE TRANSDERMAL PATCH (SIMILAR TO NDA 21?306) [Suspect]
     Active Substance: BUPRENORPHINE
     Indication: PAIN
     Dosage: UNKNOWN
     Route: 062
  12. OXYCODONE HCL CR TABLETS (SIMILAR TO NDA 22?272) [Suspect]
     Active Substance: OXYCODONE HYDROCHLORIDE
     Indication: PAIN
     Dosage: 20 MG, UNK
     Route: 048
     Dates: start: 20100222
  13. OXYCONTIN [Suspect]
     Active Substance: OXYCODONE HYDROCHLORIDE
     Indication: PAIN
     Dosage: 20 MG, BID
     Route: 048
  14. OXYCODONE HCL TABLETS (RHODES 91?490) [Suspect]
     Active Substance: OXYCODONE HYDROCHLORIDE
     Indication: PAIN
     Dosage: 15 MG, UNK
     Route: 048
     Dates: start: 20100118
  15. HYDROMORPHONE TABLETS [Suspect]
     Active Substance: HYDROMORPHONE
     Indication: PAIN
     Dosage: 4 MG, UNK
     Route: 048
     Dates: start: 20101020
  16. HYDROCODONE BITARTRATE AND ACETAMINOPHEN [Suspect]
     Active Substance: ACETAMINOPHEN\HYDROCODONE BITARTRATE
     Indication: PAIN
     Dosage: UNKNOWN
     Route: 048
  17. SOMA [Suspect]
     Active Substance: CARISOPRODOL
     Indication: PAIN
     Dosage: 250 MG, UNK
     Route: 065
  18. VICODIN [Suspect]
     Active Substance: ACETAMINOPHEN\HYDROCODONE BITARTRATE
     Indication: PAIN
     Dosage: UNKNOWN
     Route: 065

REACTIONS (6)
  - Road traffic accident [Unknown]
  - Depression [Unknown]
  - Drug withdrawal syndrome [Unknown]
  - Suicidal ideation [Unknown]
  - Overdose [Unknown]
  - Drug dependence [Unknown]
